FAERS Safety Report 5591947-1 (Version None)
Quarter: 2008Q1

REPORT INFORMATION
  Report Type: 
  Country: None (occurrence: None)
  Receive Date: 20080115
  Receipt Date: 20080109
  Transmission Date: 20080703
  Serious: Yes (Hospitalization)
  Sender: FDA-Public Use
  Company Number: US-ELI_LILLY_AND_COMPANY-US200801001859

PATIENT
  Sex: Female

DRUGS (3)
  1. GEMZAR [Suspect]
     Indication: BLADDER CANCER
     Dates: start: 20070901, end: 20070101
  2. CISPLATIN [Concomitant]
     Indication: BLADDER CANCER
     Dates: start: 20070901, end: 20070101
  3. ANTIBIOTICS [Concomitant]
     Indication: PROPHYLAXIS
     Dosage: UNK, DAILY (1/D)

REACTIONS (8)
  - ALOPECIA [None]
  - BLOOD COUNT ABNORMAL [None]
  - DEHYDRATION [None]
  - FATIGUE [None]
  - HEADACHE [None]
  - NAUSEA [None]
  - RETCHING [None]
  - URINARY TRACT INFECTION [None]
